FAERS Safety Report 10650195 (Version 1)
Quarter: 2014Q4

REPORT INFORMATION
  Report Type: Spontaneous
  Country: US (occurrence: US)
  Receive Date: 20141212
  Receipt Date: 20141212
  Transmission Date: 20150529
  Serious: Yes (Hospitalization, Other)
  Sender: FDA-Public Use
  Company Number: US-GLAXOSMITHKLINE-US2014GSK034951

PATIENT
  Sex: Male

DRUGS (1)
  1. AVANDAMET [Suspect]
     Active Substance: METFORMIN HYDROCHLORIDE\ROSIGLITAZONE MALEATE
     Indication: DIABETES MELLITUS
     Dosage: 4 UNK, UNK
     Dates: start: 20081108

REACTIONS (3)
  - Cardiomyopathy [Unknown]
  - Cardiac failure congestive [Unknown]
  - Acute pulmonary oedema [Unknown]
